FAERS Safety Report 18148352 (Version 13)
Quarter: 2021Q2

REPORT INFORMATION
  Report Type: Spontaneous
  Country: US (occurrence: US)
  Receive Date: 20200813
  Receipt Date: 20210506
  Transmission Date: 20210717
  Serious: Yes (Other)
  Sender: FDA-Public Use
  Company Number: US-JNJFOC-20200806715

PATIENT
  Sex: Male

DRUGS (7)
  1. RISPERDAL CONSTA [Suspect]
     Active Substance: RISPERIDONE
     Indication: PRODUCT USED FOR UNKNOWN INDICATION
     Dosage: (BATCH NUMBER: 101574P1 AND EXPIRY: /DEC/2021) RECEIVED ON 27?JUL?2020, 10?AUG?2020, 24?AUG?2020
     Route: 030
  2. RISPERDAL CONSTA [Suspect]
     Active Substance: RISPERIDONE
     Dosage: SERIAL NUMBER 100002910158, LOT NUMBER 103983P1 AND EXPIRY /NOV/2022
     Route: 030
     Dates: start: 20210322
  3. RISPERDAL CONSTA [Suspect]
     Active Substance: RISPERIDONE
     Dosage: (BATCH NUMBER: 103073P1 AND EXPIRY: /JUN/2022) RECEIVED ON 08?SEP?2020 RESPECTIVELY
     Route: 030
  4. RISPERDAL CONSTA [Suspect]
     Active Substance: RISPERIDONE
     Dosage: (BATCH NUMBER: 103983P1 AND EXPIRY: /NOV/2022)
     Route: 030
     Dates: start: 20201116
  5. RISPERDAL CONSTA [Suspect]
     Active Substance: RISPERIDONE
     Route: 030
     Dates: start: 20201130
  6. RISPERDAL CONSTA [Suspect]
     Active Substance: RISPERIDONE
     Dosage: SERIAL NUMBER 100002910166, LOT NUMBER 103983P1  AND EXPIRY /NOV/2022
     Route: 030
     Dates: start: 20210405
  7. RISPERDAL CONSTA [Suspect]
     Active Substance: RISPERIDONE
     Dosage: SERIAL NUMBER: 100004131860 AND 100004129613, BATCH NO. 98748P2, EXPIRY /JUN/2022
     Route: 030
     Dates: start: 20201130

REACTIONS (14)
  - Increased tendency to bruise [Unknown]
  - Suspected counterfeit product [Unknown]
  - Illness [Unknown]
  - Hepatic enzyme abnormal [Unknown]
  - Diabetes mellitus [Unknown]
  - Platelet count decreased [Unknown]
  - Appetite disorder [Unknown]
  - Hypertension [Unknown]
  - Blood cholesterol increased [Unknown]
  - Renal impairment [Unknown]
  - Movement disorder [Unknown]
  - Treatment noncompliance [Unknown]
  - White blood cell count decreased [Unknown]
  - Nervous system disorder [Unknown]
